FAERS Safety Report 15427310 (Version 2)
Quarter: 2019Q3

REPORT INFORMATION
  Report Type: Report from Study
  Country: US (occurrence: US)
  Receive Date: 20180925
  Receipt Date: 20190725
  Transmission Date: 20191004
  Serious: No
  Sender: FDA-Public Use
  Company Number: PHEH2018US039049

PATIENT
  Sex: Male

DRUGS (1)
  1. GILENYA [Suspect]
     Active Substance: FINGOLIMOD HYDROCHLORIDE
     Indication: MULTIPLE SCLEROSIS
     Dosage: 0.5 MG, QD
     Route: 048
     Dates: start: 20180323

REACTIONS (5)
  - Malaise [Unknown]
  - Myalgia [Recovering/Resolving]
  - Muscle spasticity [Recovering/Resolving]
  - Limb discomfort [Recovering/Resolving]
  - Visual impairment [Unknown]
